FAERS Safety Report 21778919 (Version 1)
Quarter: 2022Q4

REPORT INFORMATION
  Report Type: Spontaneous
  Country: US (occurrence: None)
  Receive Date: 20221226
  Receipt Date: 20221226
  Transmission Date: 20230112
  Serious: Yes (Death)
  Sender: FDA-Public Use
  Company Number: 2022A416714

PATIENT
  Age: 69 Year
  Sex: Male
  Weight: 97.5 kg

DRUGS (1)
  1. IMFINZI [Suspect]
     Active Substance: DURVALUMAB
     Indication: Hepatic cancer
     Route: 042
     Dates: start: 20221208

REACTIONS (1)
  - Death [Fatal]

NARRATIVE: CASE EVENT DATE: 20221213
